FAERS Safety Report 16385087 (Version 1)
Quarter: 2019Q2

REPORT INFORMATION
  Report Type: Spontaneous
  Country: JP (occurrence: JP)
  Receive Date: 20190603
  Receipt Date: 20190603
  Transmission Date: 20190711
  Serious: Yes (Other)
  Sender: FDA-Public Use
  Company Number: JP-PFIZER INC-2019226778

PATIENT
  Age: 50 Year
  Sex: Female

DRUGS (3)
  1. METHOTREXATE SODIUM. [Suspect]
     Active Substance: METHOTREXATE SODIUM
     Dosage: 10 MG, WEEKLY
     Route: 048
  2. PREDNISOLONE. [Concomitant]
     Active Substance: PREDNISOLONE
     Dosage: 5 MG, DAILY
  3. IGURATIMOD [Concomitant]
     Active Substance: IGURATIMOD
     Dosage: 50 MG, DAILY

REACTIONS (5)
  - Pyrexia [Unknown]
  - Nodule [Recovering/Resolving]
  - Renal cell carcinoma [Recovering/Resolving]
  - Lymphoproliferative disorder [Unknown]
  - Dyspnoea [Unknown]
